FAERS Safety Report 9766982 (Version 1)
Quarter: 2013Q4

REPORT INFORMATION
  Report Type: Spontaneous
  Country: US (occurrence: US)
  Receive Date: 20131217
  Receipt Date: 20131217
  Transmission Date: 20140711
  Serious: No
  Sender: FDA-Public Use
  Company Number: US-GLAXOSMITHKLINE-A1035741A

PATIENT
  Age: 63 Year
  Sex: Male

DRUGS (1)
  1. VOTRIENT [Suspect]
     Indication: EXPOSURE VIA PARTNER
     Route: 067
     Dates: start: 2013

REACTIONS (2)
  - Penile erythema [Unknown]
  - Exposure via partner [Unknown]
